FAERS Safety Report 6834755-3 (Version None)
Quarter: 2010Q3

REPORT INFORMATION
  Report Type: 
  Country: None (occurrence: None)
  Receive Date: 20100712
  Receipt Date: 20070423
  Transmission Date: 20110219
  Serious: No
  Sender: FDA-Public Use
  Company Number: US-PFIZER INC-2007034027

PATIENT
  Sex: Female
  Weight: 56.7 kg

DRUGS (6)
  1. CHANTIX [Suspect]
     Indication: SMOKING CESSATION THERAPY
     Dates: start: 20070401, end: 20070422
  2. LOPRESSOR [Concomitant]
  3. PLAVIX [Concomitant]
  4. NORVASC [Concomitant]
  5. NEXIUM [Concomitant]
  6. XANAX [Concomitant]
     Dosage: HALF A TABLET DAILY

REACTIONS (3)
  - DIZZINESS [None]
  - FLATULENCE [None]
  - NAUSEA [None]
